FAERS Safety Report 10522865 (Version 2)
Quarter: 2014Q4

REPORT INFORMATION
  Report Type: Spontaneous
  Country: US (occurrence: US)
  Receive Date: 20141016
  Receipt Date: 20141016
  Transmission Date: 20150528
  Serious: Yes (Hospitalization, Other)
  Sender: FDA-Public Use
  Company Number: US-GLAXOSMITHKLINE-A0857811A

PATIENT
  Sex: Male
  Weight: 127 kg

DRUGS (2)
  1. ACTOS [Suspect]
     Active Substance: PIOGLITAZONE HYDROCHLORIDE
     Indication: TYPE 2 DIABETES MELLITUS
     Route: 048
  2. AVANDIA [Suspect]
     Active Substance: ROSIGLITAZONE MALEATE
     Indication: TYPE 2 DIABETES MELLITUS
     Route: 048
     Dates: start: 1999, end: 20000723

REACTIONS (7)
  - Arrhythmia [Unknown]
  - Cardiac failure congestive [Unknown]
  - Rash [Unknown]
  - Atrioventricular block [Unknown]
  - Fluid retention [Unknown]
  - Swelling [Unknown]
  - Drug hypersensitivity [Unknown]
